FAERS Safety Report 5424541-3 (Version None)
Quarter: 2007Q3

REPORT INFORMATION
  Report Type: 
  Country: None (occurrence: None)
  Receive Date: 20070822
  Receipt Date: 20070808
  Transmission Date: 20080115
  Serious: Yes (Death)
  Sender: FDA-Public Use
  Company Number: 2007JP003772

PATIENT
  Sex: Male

DRUGS (5)
  1. PROGRAF [Suspect]
     Indication: LIVER TRANSPLANT
  2. GANCICLOVIR (GANCICLOVIR) FORMULATION UNKNOWN [Concomitant]
  3. DIFLUCAN (FLUCONAZOLE) FORMULATION UNKNOWN [Concomitant]
  4. LAMIVUDINE (LAMIVUDINE) FORMULATION UNKNOWN [Concomitant]
  5. HEPATITIS B IMMUNE GLOBULIN (IMMUNOGLOBULIN ANTIHEPATITIS B) FORMULATI [Concomitant]

REACTIONS (4)
  - HEPATIC FUNCTION ABNORMAL [None]
  - MULTI-ORGAN FAILURE [None]
  - OPERATIVE HAEMORRHAGE [None]
  - SEPSIS [None]
